FAERS Safety Report 6222940-3 (Version None)
Quarter: 2009Q2

REPORT INFORMATION
  Report Type: 
  Country: None (occurrence: None)
  Receive Date: 20090611
  Receipt Date: 20090604
  Transmission Date: 20091009
  Serious: Yes (Hospitalization, Other)
  Sender: FDA-Public Use
  Company Number: US-ABBOTT-09P-163-0578143-00

PATIENT
  Sex: Female
  Weight: 58.112 kg

DRUGS (5)
  1. HUMIRA [Suspect]
     Indication: RHEUMATOID ARTHRITIS
     Dosage: STOPPED DUE TO BACK SURGERY
     Route: 058
     Dates: start: 20070101, end: 20080801
  2. HUMIRA [Suspect]
     Dosage: RESTARTED APPROX 6 WKS AFTER BACK SURGERY
     Route: 058
  3. HUMIRA [Suspect]
     Indication: RHEUMATOID ARTHRITIS
     Route: 058
     Dates: start: 20090301
  4. SYNTHROID [Concomitant]
     Indication: HYPOTHYROIDISM
  5. UNKNOWN EIGHT OTHER MEDICATIONS [Concomitant]
     Indication: DRUG USE FOR UNKNOWN INDICATION

REACTIONS (5)
  - BACK PAIN [None]
  - CONTUSION [None]
  - INJECTION SITE HAEMATOMA [None]
  - INTERVERTEBRAL DISC DEGENERATION [None]
  - SPINAL COLUMN STENOSIS [None]
